FAERS Safety Report 5400297-5 (Version None)
Quarter: 2007Q3

REPORT INFORMATION
  Report Type: 
  Country: None (occurrence: None)
  Receive Date: 20070730
  Receipt Date: 20070719
  Transmission Date: 20080115
  Serious: Yes (Hospitalization)
  Sender: FDA-Public Use
  Company Number: US-ROCHE-507775

PATIENT
  Age: 66 Year
  Sex: Female

DRUGS (6)
  1. BONIVA [Suspect]
     Indication: OSTEOPOROSIS
     Route: 042
  2. ATENOLOL [Concomitant]
  3. MICARDIS [Concomitant]
  4. PREMARIN [Concomitant]
  5. KRISTALOSE [Concomitant]
     Indication: RECTAL PROLAPSE
  6. OMEPRAZOLE [Concomitant]

REACTIONS (3)
  - INJECTION SITE EXTRAVASATION [None]
  - NO ADVERSE REACTION [None]
  - UNDERDOSE [None]
